FAERS Safety Report 6766151-1 (Version None)
Quarter: 2010Q2

REPORT INFORMATION
  Report Type: 
  Country: None (occurrence: None)
  Receive Date: 20100611
  Receipt Date: 20100601
  Transmission Date: 20101027
  Serious: Yes (Hospitalization)
  Sender: FDA-Public Use
  Company Number: FR-SANOFI-AVENTIS-2010SA031349

PATIENT
  Age: 75 Year
  Sex: Male

DRUGS (9)
  1. LOVENOX [Suspect]
     Indication: THROMBOSIS PROPHYLAXIS
     Route: 058
     Dates: end: 20100507
  2. OXACILLIN [Suspect]
     Indication: INFECTION
     Route: 042
     Dates: start: 20100505, end: 20100507
  3. COLCHICINE [Suspect]
     Indication: GOUT
     Route: 048
     Dates: end: 20100507
  4. AVLOCARDYL [Concomitant]
     Route: 065
  5. LACTULOSE [Concomitant]
     Route: 048
  6. PANTOPRAZOLE SODIUM [Concomitant]
     Route: 065
  7. NICERGOLINE [Concomitant]
     Route: 048
  8. PRAVASTATIN [Concomitant]
     Route: 048
  9. VITAMIN B1 AND B6 [Concomitant]
     Route: 048

REACTIONS (1)
  - PANCYTOPENIA [None]
